FAERS Safety Report 23633823 (Version 1)
Quarter: 2024Q1

REPORT INFORMATION
  Report Type: Spontaneous
  Country: US (occurrence: US)
  Receive Date: 20240314
  Receipt Date: 20240314
  Transmission Date: 20240409
  Serious: No
  Sender: FDA-Public Use
  Company Number: US-PFIZER INC-202400063971

PATIENT
  Age: 48 Year
  Sex: Female

DRUGS (12)
  1. XELJANZ XR [Suspect]
     Active Substance: TOFACITINIB CITRATE
     Dosage: 11 MG, DAILY
     Route: 048
     Dates: start: 202308
  2. HYDROCORTISONE [Concomitant]
     Active Substance: HYDROCORTISONE
  3. RANITIDINE [Concomitant]
     Active Substance: RANITIDINE
  4. MAGNESIUM [Concomitant]
     Active Substance: MAGNESIUM
  5. PROBIOTICS NOS [Concomitant]
     Active Substance: PROBIOTICS NOS
  6. ACIDOPHILUS [Concomitant]
     Active Substance: LACTOBACILLUS ACIDOPHILUS
  7. VITAMIN D3 [Concomitant]
     Active Substance: CHOLECALCIFEROL
  8. IODINE [Concomitant]
     Active Substance: IODINE
  9. PROGESTERONE [Concomitant]
     Active Substance: PROGESTERONE
  10. MELOXICAM [Concomitant]
     Active Substance: MELOXICAM
  11. VITAMINS NOS [Concomitant]
     Active Substance: VITAMINS
  12. ASCORBIC ACID [Concomitant]
     Active Substance: ASCORBIC ACID

REACTIONS (1)
  - Therapeutic product effect incomplete [Not Recovered/Not Resolved]
